FAERS Safety Report 7745272-0 (Version None)
Quarter: 2011Q3

REPORT INFORMATION
  Report Type: 
  Country: None (occurrence: None)
  Receive Date: 20110819
  Receipt Date: 20110513
  Transmission Date: 20111222
  Serious: No
  Sender: FDA-Public Use
  Company Number: 034071

PATIENT
  Sex: Male

DRUGS (1)
  1. LACOSAMIDE [Suspect]
     Dosage: (STRENGTH: 10ML/MG, DOSE: 2.5 ML BID (TOOK 25 ML BID))

REACTIONS (2)
  - SOMNOLENCE [None]
  - ACCIDENTAL OVERDOSE [None]
